FAERS Safety Report 24250543 (Version 1)
Quarter: 2024Q3

REPORT INFORMATION
  Report Type: Spontaneous
  Country: US (occurrence: None)
  Receive Date: 20240824
  Receipt Date: 20240824
  Transmission Date: 20241017
  Serious: Yes (unspecified)
  Sender: Public
  Company Number: None

PATIENT
  Age: 27 Year
  Sex: Female
  Weight: 54 kg

DRUGS (1)
  1. SPIRONOLACTONE [Suspect]
     Active Substance: SPIRONOLACTONE
     Indication: Acne
     Dosage: OTHER QUANTITY : 1 TABLET(S);?FREQUENCY : DAILY;?
     Route: 048
     Dates: start: 20240801

REACTIONS (7)
  - Therapy change [None]
  - Mental disorder [None]
  - Emotional disorder [None]
  - Crying [None]
  - Heavy menstrual bleeding [None]
  - Suicidal ideation [None]
  - Therapy change [None]

NARRATIVE: CASE EVENT DATE: 20240805
